FAERS Safety Report 8774086 (Version 1)
Quarter: 2012Q4

REPORT INFORMATION
  Report Type: 
  Country: GB (occurrence: GB)
  Receive Date: 20120908
  Receipt Date: 20120908
  Transmission Date: 20130627
  Serious: Yes (Hospitalization)
  Sender: FDA-Public Use
  Company Number: GB-ROCHE-1103698

PATIENT
  Age: 12 Year
  Sex: Female
  Weight: 85.08 kg

DRUGS (9)
  1. XOLAIR [Suspect]
     Indication: ASTHMA
     Route: 058
     Dates: start: 20120724
  2. PREDNISONE [Concomitant]
  3. SERETIDE [Concomitant]
  4. SALBUTAMOL [Concomitant]
  5. AZITHROMYCIN [Concomitant]
  6. THEOPHYLLINE [Concomitant]
  7. OMEPRAZOLE [Concomitant]
  8. CETIRIZINE HYDROCHLORIDE [Concomitant]
  9. FLUTICASONE FUROATE [Concomitant]

REACTIONS (1)
  - Type I hypersensitivity [Recovered/Resolved with Sequelae]
